FAERS Safety Report 19246324 (Version 3)
Quarter: 2021Q2

REPORT INFORMATION
  Report Type: Report from Study
  Country: None (occurrence: BE)
  Receive Date: 20210512
  Receipt Date: 20210520
  Transmission Date: 20210717
  Serious: Yes (Hospitalization)
  Sender: FDA-Public Use
  Company Number: BE-ABBVIE-21K-013-3900069-00

PATIENT
  Sex: Male
  Weight: 75 kg

DRUGS (6)
  1. DUODOPA [Suspect]
     Active Substance: CARBIDOPA\LEVODOPA
     Dosage: MD 5.5 ML
     Route: 050
     Dates: start: 20200612, end: 20200922
  2. DUODOPA [Suspect]
     Active Substance: CARBIDOPA\LEVODOPA
     Indication: PARKINSON^S DISEASE
     Route: 050
     Dates: start: 20180313, end: 20200612
  3. DUODOPA [Suspect]
     Active Substance: CARBIDOPA\LEVODOPA
     Dosage: MD 5.5 ML; CD 3.4 ML/H; ED 2.0 ML DURING 16HRS
     Route: 050
     Dates: start: 20200922, end: 20201123
  4. DUODOPA [Suspect]
     Active Substance: CARBIDOPA\LEVODOPA
     Dosage: MD 5.5 ML; CD 3.2 ML/H; ED 2.0 ML DURING 16HRS
     Route: 050
     Dates: start: 20201123, end: 20201130
  5. DUODOPA [Suspect]
     Active Substance: CARBIDOPA\LEVODOPA
     Dosage: CD 3.1ML/H; DURING 16HRS
     Route: 050
     Dates: start: 20201130, end: 20201208
  6. DUODOPA [Suspect]
     Active Substance: CARBIDOPA\LEVODOPA
     Dosage: MD 5.5 ML; CD 3.1 ML/H; ED 1.7 ML DURING 16HRS
     Route: 050
     Dates: start: 20201208

REACTIONS (4)
  - Inflammation [Recovered/Resolved]
  - Pallor [Unknown]
  - Hypokinesia [Unknown]
  - Abdominal pain [Unknown]
